FAERS Safety Report 18923851 (Version 1)
Quarter: 2021Q1

REPORT INFORMATION
  Report Type: Spontaneous
  Country: US (occurrence: US)
  Receive Date: 20210222
  Receipt Date: 20210222
  Transmission Date: 20210420
  Serious: No
  Sender: FDA-Public Use
  Company Number: US-JNJFOC-20210228720

PATIENT
  Age: 72 Year
  Sex: Female
  Weight: 64.47 kg

DRUGS (1)
  1. SPRAVATO [Suspect]
     Active Substance: ESKETAMINE
     Indication: ANXIETY

REACTIONS (2)
  - Depression [Unknown]
  - Therapeutic response decreased [Unknown]
